FAERS Safety Report 20690415 (Version 3)
Quarter: 2022Q2

REPORT INFORMATION
  Report Type: Spontaneous
  Country: HU (occurrence: HU)
  Receive Date: 20220408
  Receipt Date: 20220505
  Transmission Date: 20220721
  Serious: Yes (Hospitalization, Other)
  Sender: FDA-Public Use
  Company Number: HU-NOVARTISPH-NVSC2022HU078292

PATIENT
  Age: 5 Year
  Sex: Male

DRUGS (15)
  1. LEVETIRACETAM [Suspect]
     Active Substance: LEVETIRACETAM
     Indication: Status epilepticus
     Dosage: UNK
     Route: 051
  2. DIAZEPAM [Concomitant]
     Active Substance: DIAZEPAM
     Indication: Epilepsy
     Dosage: UNK
     Route: 054
  3. MIDAZOLAM [Concomitant]
     Active Substance: MIDAZOLAM
     Indication: Epilepsy
     Dosage: UNK
     Route: 042
  4. MIDAZOLAM [Concomitant]
     Active Substance: MIDAZOLAM
     Dosage: UNK (CONTINUOUS PROPOFOL AND MIDAZOLAM USED WITH MECHANICAL VENTILATION)
     Route: 065
  5. PROPOFOL [Concomitant]
     Active Substance: PROPOFOL
     Indication: Status epilepticus
     Dosage: UNK
     Route: 065
  6. PROPOFOL [Concomitant]
     Active Substance: PROPOFOL
     Dosage: UNK (CONTINUOUS PROPOFOL AND MIDAZOLAM USED WITH MECHANICAL VENTILATION)
     Route: 065
  7. PHENOBARBITAL [Concomitant]
     Active Substance: PHENOBARBITAL
     Indication: Status epilepticus
     Dosage: UNK
     Route: 065
  8. ACYCLOVIR [Concomitant]
     Active Substance: ACYCLOVIR
     Indication: Central nervous system infection
     Dosage: UNK (EMPIRICAL)
     Route: 051
  9. ACYCLOVIR [Concomitant]
     Active Substance: ACYCLOVIR
     Indication: Prophylaxis
  10. CEFTRIAXONE [Concomitant]
     Active Substance: CEFTRIAXONE
     Indication: Central nervous system infection
     Dosage: UNK (EMPIRICAL)
     Route: 051
  11. CEFTRIAXONE [Concomitant]
     Active Substance: CEFTRIAXONE
     Indication: Prophylaxis
  12. VANCOMYCIN [Concomitant]
     Active Substance: VANCOMYCIN
     Indication: Pneumonia pneumococcal
     Dosage: UNK
     Route: 051
  13. PHENYTOIN [Concomitant]
     Active Substance: PHENYTOIN
     Indication: Status epilepticus
     Dosage: LOADING OF 20 MG/KG
     Route: 065
  14. VALPROATE [Concomitant]
     Active Substance: VALPROIC ACID
     Indication: Seizure
     Dosage: UNK
     Route: 051
  15. CARBAMAZEPINE [Concomitant]
     Active Substance: CARBAMAZEPINE
     Indication: Seizure
     Dosage: UNK
     Route: 065

REACTIONS (1)
  - Encephalitis autoimmune [Unknown]
